FAERS Safety Report 4300846-4 (Version None)
Quarter: 2004Q1

REPORT INFORMATION
  Report Type: 
  Country: None (occurrence: None)
  Receive Date: 20040220
  Receipt Date: 20040127
  Transmission Date: 20041129
  Serious: Yes (Hospitalization)
  Sender: FDA-Public Use
  Company Number: WAES 0401USA02119

PATIENT
  Age: 76 Year
  Sex: Male

DRUGS (5)
  1. ALLOPURINOL [Suspect]
     Indication: HYPERURICAEMIA
     Route: 048
     Dates: start: 20031101, end: 20040115
  2. AMLODIPINE BESYLATE [Suspect]
     Route: 048
     Dates: start: 20030501, end: 20040130
  3. ASPIRIN [Concomitant]
  4. FUROSEMIDE [Concomitant]
     Dates: end: 20040129
  5. COZAAR [Suspect]
     Indication: HYPERTENSION
     Route: 048
     Dates: start: 20030501, end: 20040130

REACTIONS (2)
  - APLASTIC ANAEMIA [None]
  - PANCYTOPENIA [None]
